FAERS Safety Report 11162440 (Version 1)
Quarter: 2015Q2

REPORT INFORMATION
  Report Type: Spontaneous
  Country: US (occurrence: None)
  Receive Date: 20150603
  Receipt Date: 20150603
  Transmission Date: 20150821
  Serious: No
  Sender: FDA-Public Use
  Company Number: None

PATIENT

DRUGS (3)
  1. CAPECITABINE. [Suspect]
     Active Substance: CAPECITABINE
     Indication: HEPATIC CANCER
     Dosage: 2 WEEKS AGO?14 DAYS ON, 7 OFF
     Route: 048
     Dates: start: 20150226
  2. CAPECITABINE. [Suspect]
     Active Substance: CAPECITABINE
     Indication: LUNG NEOPLASM MALIGNANT
     Dosage: 2 WEEKS AGO?14 DAYS ON, 7 OFF
     Route: 048
     Dates: start: 20150226
  3. CAPECITABINE. [Suspect]
     Active Substance: CAPECITABINE
     Indication: COLON CANCER
     Dosage: 2 WEEKS AGO?14 DAYS ON, 7 OFF
     Route: 048
     Dates: start: 20150226

REACTIONS (1)
  - No therapeutic response [None]
